FAERS Safety Report 13241880 (Version 1)
Quarter: 2017Q1

REPORT INFORMATION
  Report Type: Spontaneous
  Country: US (occurrence: US)
  Receive Date: 20170217
  Receipt Date: 20170217
  Transmission Date: 20170428
  Serious: No
  Sender: FDA-Public Use
  Company Number: US-PFIZER INC-2017071992

PATIENT
  Sex: Female
  Weight: 59 kg

DRUGS (2)
  1. LYRICA [Suspect]
     Active Substance: PREGABALIN
     Indication: SYSTEMIC LUPUS ERYTHEMATOSUS
     Dosage: 50 MG, UNK
     Dates: start: 2010
  2. LYRICA [Suspect]
     Active Substance: PREGABALIN
     Dosage: 150 MG, UNK
     Dates: end: 2016

REACTIONS (7)
  - Skin lesion [Unknown]
  - Asthenia [Unknown]
  - Bladder disorder [Unknown]
  - Pain [Unknown]
  - Renal disorder [Unknown]
  - Drug ineffective for unapproved indication [Unknown]
  - Alopecia [Unknown]
